FAERS Safety Report 8848297 (Version 3)
Quarter: 2013Q1

REPORT INFORMATION
  Report Type: Report from Study
  Country: FR (occurrence: FR)
  Receive Date: 20121018
  Receipt Date: 20130218
  Transmission Date: 20140127
  Serious: Yes (Other)
  Sender: FDA-Public Use
  Company Number: FR-MERCK-1210FRA007329

PATIENT
  Age: 50 Year
  Sex: Male
  Weight: 71 kg

DRUGS (24)
  1. RIBAVIRIN [Suspect]
     Indication: CHRONIC HEPATITIS C
     Dosage: 400 MG, BID
     Route: 048
  2. RITONAVIR [Suspect]
     Indication: CHRONIC HEPATITIS C
     Dosage: UNK, BID
     Route: 048
     Dates: start: 20110906
  3. PEGINTERFERON ALFA-2A [Suspect]
     Dosage: 180 MICROGRAM, UNK
     Route: 058
  4. TRIVASTAL [Concomitant]
     Indication: PARAESTHESIA
     Dosage: UNK
     Dates: start: 2001
  5. NOCTAMIDE [Concomitant]
     Indication: INSOMNIA
     Dosage: UNK
     Dates: start: 20111004, end: 20120328
  6. DEXERYL CREAM [Concomitant]
     Indication: ERYTHEMA
     Dosage: UNK
     Dates: start: 20111004, end: 20111220
  7. DEXERYL CREAM [Concomitant]
     Indication: PRURITUS
  8. XYZAL [Concomitant]
     Indication: PRURITUS
     Dosage: UNK
     Dates: start: 20111004, end: 20111108
  9. PRIMPERAN [Concomitant]
     Indication: NAUSEA
     Dosage: UNK
     Dates: start: 20111004, end: 20120106
  10. PRIMPERAN [Concomitant]
     Dosage: UNK
     Dates: start: 20120113, end: 20120221
  11. IBUPROFEN [Concomitant]
     Indication: FACIAL PAIN
     Dosage: UNK
     Dates: start: 20111018, end: 20111206
  12. ARTHRODONT [Concomitant]
     Indication: TONGUE DISORDER
     Dosage: UNK
     Dates: start: 20111018, end: 20111206
  13. ACETAMINOPHEN [Concomitant]
     Indication: HEADACHE
     Dosage: UNK
     Dates: start: 20110906, end: 20111017
  14. SODIUM BICARBONATE [Concomitant]
     Indication: TONGUE DISORDER
     Dosage: UNK
     Dates: start: 20111018, end: 20111206
  15. NEORECORMON [Concomitant]
     Indication: ANAEMIA
     Dosage: UNK
     Dates: start: 20111108, end: 20120215
  16. KETOCONAZOLE [Concomitant]
     Indication: PRURITUS
     Dosage: UNK
     Dates: start: 20111117, end: 20111220
  17. NERISONE [Concomitant]
     Indication: PRURITUS
     Dosage: UNK
     Dates: start: 20111117, end: 20111215
  18. PYOSTACINE [Concomitant]
     Indication: OEDEMA PERIPHERAL
     Dosage: UNK
     Dates: start: 20111115, end: 20111125
  19. SOLIAN [Concomitant]
     Indication: AFFECTIVE DISORDER
     Dosage: UNK
     Dates: start: 20111228, end: 20120110
  20. SOLIAN [Concomitant]
     Indication: IRRITABILITY
     Dosage: UNK
     Dates: start: 20120509, end: 20120807
  21. SMECTA [Concomitant]
     Indication: DIARRHOEA
     Dosage: UNK
     Dates: start: 20111215, end: 20111228
  22. PAROXETINE [Concomitant]
     Indication: AFFECTIVE DISORDER
     Dosage: UNK
     Dates: start: 20120110, end: 20120328
  23. BLOOD CELLS, RED [Concomitant]
     Indication: ANAEMIA
     Dosage: UNK
     Dates: start: 20111206, end: 20111206
  24. SERESTA [Concomitant]
     Indication: IRRITABILITY
     Dosage: UNK
     Dates: start: 20100506

REACTIONS (1)
  - Porphyria non-acute [Not Recovered/Not Resolved]
